FAERS Safety Report 18900348 (Version 5)
Quarter: 2021Q2

REPORT INFORMATION
  Report Type: Other
  Country: US (occurrence: US)
  Receive Date: 20210217
  Receipt Date: 20210405
  Transmission Date: 20210717
  Serious: No
  Sender: FDA-Public Use
  Company Number: US-NEUROCRINE BIOSCIENCES INC.-2021NBI00591

PATIENT

DRUGS (4)
  1. AUSTEDO [Suspect]
     Active Substance: DEUTETRABENAZINE
     Indication: PRODUCT USED FOR UNKNOWN INDICATION
     Dosage: UNK
     Route: 065
  2. MIRTAZAPINE. [Suspect]
     Active Substance: MIRTAZAPINE
     Indication: PRODUCT USED FOR UNKNOWN INDICATION
     Dosage: UNK
     Route: 065
  3. INGREZZA [Suspect]
     Active Substance: VALBENAZINE
     Dosage: 80 MILLIGRAM QD
     Route: 048
     Dates: start: 20210210, end: 2021
  4. INGREZZA [Suspect]
     Active Substance: VALBENAZINE
     Indication: TARDIVE DYSKINESIA
     Dosage: 40 MILLIGRAM QD
     Route: 048
     Dates: start: 20210202, end: 20210209

REACTIONS (22)
  - Crying [Unknown]
  - Hypoaesthesia oral [Unknown]
  - Gingival discomfort [Unknown]
  - Insomnia [Unknown]
  - Lip swelling [Unknown]
  - Ageusia [Unknown]
  - Hunger [Unknown]
  - Product dose omission issue [Unknown]
  - Depression [Unknown]
  - Hyperhidrosis [Unknown]
  - Feeling cold [Unknown]
  - Dry mouth [Unknown]
  - Gingival swelling [Unknown]
  - Euphoric mood [Unknown]
  - Musculoskeletal stiffness [Unknown]
  - Speech disorder [Unknown]
  - Fatigue [Unknown]
  - Balance disorder [Unknown]
  - Drug ineffective [Unknown]
  - Tardive dyskinesia [Unknown]
  - Dizziness [Unknown]
  - Anxiety [Unknown]

NARRATIVE: CASE EVENT DATE: 2021
